FAERS Safety Report 24580362 (Version 2)
Quarter: 2024Q4

REPORT INFORMATION
  Report Type: Spontaneous
  Country: US (occurrence: US)
  Receive Date: 20241105
  Receipt Date: 20241107
  Transmission Date: 20250114
  Serious: Yes (Hospitalization)
  Sender: MERCK
  Company Number: US-009507513-2410USA013055

PATIENT
  Sex: Male

DRUGS (1)
  1. ISENTRESS [Suspect]
     Active Substance: RALTEGRAVIR POTASSIUM
     Indication: HIV infection
     Dosage: 2 600MG TABLETS ONCE DAILY (1200 MILLIGRAM, QD)
     Route: 048

REACTIONS (1)
  - Hospitalisation [Unknown]
